FAERS Safety Report 17569385 (Version 1)
Quarter: 2020Q1

REPORT INFORMATION
  Report Type: Report from Study
  Country: DE (occurrence: DE)
  Receive Date: 20200322
  Receipt Date: 20200322
  Transmission Date: 20200409
  Serious: Yes (Hospitalization)
  Sender: FDA-Public Use
  Company Number: DE-TEVA-2020-DE-1205719

PATIENT
  Age: 76 Year
  Sex: Female
  Weight: 83 kg

DRUGS (2)
  1. CAELYX (LIPOSOMAL DOXORUBICIN) [Suspect]
     Active Substance: DOXORUBICIN HYDROCHLORIDE
     Indication: ENDOMETRIAL CANCER
     Dosage: 74.8 MG 6 CYCLE(S)
     Route: 042
     Dates: start: 20040309, end: 20040728
  2. CARBOPLATIN. [Suspect]
     Active Substance: CARBOPLATIN
     Indication: ENDOMETRIAL CANCER
     Dosage: 534 MG 6 CYCLES
     Route: 042
     Dates: start: 20040309, end: 20040728

REACTIONS (1)
  - Febrile neutropenia [Recovering/Resolving]

NARRATIVE: CASE EVENT DATE: 20040716
